FAERS Safety Report 10678238 (Version 14)
Quarter: 2016Q1

REPORT INFORMATION
  Report Type: Report from Study
  Country: CA (occurrence: CA)
  Receive Date: 20141229
  Receipt Date: 20160225
  Transmission Date: 20160525
  Serious: Yes (Hospitalization, Other)
  Sender: FDA-Public Use
  Company Number: PHHY2013CA045262

PATIENT
  Age: 55 Year
  Sex: Female

DRUGS (7)
  1. SANDOSTATIN [Suspect]
     Active Substance: OCTREOTIDE ACETATE
     Indication: GASTROINTESTINAL CARCINOMA
     Dosage: 100 UG, TID
     Route: 058
     Dates: start: 20130402, end: 201305
  2. FENTANYL. [Concomitant]
     Active Substance: FENTANYL
     Indication: PRODUCT USED FOR UNKNOWN INDICATION
     Dosage: 62 UG, UNK
     Route: 065
  3. SANDOSTATIN LAR DEPOT [Suspect]
     Active Substance: OCTREOTIDE ACETATE
     Indication: INTESTINAL OBSTRUCTION
  4. MORPHINE [Concomitant]
     Active Substance: MORPHINE
     Indication: PRODUCT USED FOR UNKNOWN INDICATION
     Dosage: 62 MG, Q72H
     Route: 062
  5. FENTANYL. [Concomitant]
     Active Substance: FENTANYL
     Dosage: 75 UG, UNK
     Route: 065
  6. SANDOSTATIN LAR DEPOT [Suspect]
     Active Substance: OCTREOTIDE ACETATE
     Indication: GASTROINTESTINAL CARCINOMA
     Dosage: 20 MG, QMO
     Route: 030
     Dates: start: 20130426
  7. SANDOSTATIN [Suspect]
     Active Substance: OCTREOTIDE ACETATE
     Indication: INTESTINAL OBSTRUCTION

REACTIONS (29)
  - Nasal discharge discolouration [Unknown]
  - Wound [Unknown]
  - Dizziness [Unknown]
  - Fatigue [Unknown]
  - Pneumonia [Unknown]
  - Pneumothorax [Unknown]
  - Transfusion-related circulatory overload [Unknown]
  - Decreased immune responsiveness [Unknown]
  - Hypoaesthesia [Recovering/Resolving]
  - Nasal congestion [Unknown]
  - Hyperhidrosis [Unknown]
  - Rhinorrhoea [Unknown]
  - Erythema [Unknown]
  - Decreased appetite [Unknown]
  - Constipation [Unknown]
  - Blood pressure increased [Unknown]
  - Metastases to abdominal cavity [Unknown]
  - Dyspnoea [Not Recovered/Not Resolved]
  - Nasopharyngitis [Unknown]
  - Nodule [Unknown]
  - Blood pressure systolic increased [Unknown]
  - Cough [Recovered/Resolved]
  - Rash [Unknown]
  - Breath sounds abnormal [Unknown]
  - Heart rate increased [Unknown]
  - Abdominal pain lower [Unknown]
  - Vertigo [Unknown]
  - Back pain [Unknown]
  - Product use issue [Unknown]

NARRATIVE: CASE EVENT DATE: 20130402
